FAERS Safety Report 23557364 (Version 2)
Quarter: 2024Q2

REPORT INFORMATION
  Report Type: Spontaneous
  Country: JP (occurrence: None)
  Receive Date: 20240223
  Receipt Date: 20240416
  Transmission Date: 20240716
  Serious: No
  Sender: FDA-Public Use
  Company Number: 2024A042214

PATIENT
  Sex: Female

DRUGS (1)
  1. LYNPARZA [Suspect]
     Active Substance: OLAPARIB
     Route: 048
     Dates: start: 2020, end: 2024

REACTIONS (1)
  - No adverse event [Unknown]
